FAERS Safety Report 18637930 (Version 1)
Quarter: 2020Q4

REPORT INFORMATION
  Report Type: Report from Study
  Country: None (occurrence: US)
  Receive Date: 20201218
  Receipt Date: 20201218
  Transmission Date: 20210114
  Serious: Yes (Death)
  Sender: FDA-Public Use
  Company Number: US-VIFOR (INTERNATIONAL) INC.-VIT-2020-07707

PATIENT
  Age: 90 Year
  Sex: Male

DRUGS (20)
  1. VELTASSA [Suspect]
     Active Substance: PATIROMER
     Indication: HYPERKALAEMIA
     Route: 048
  2. VELTASSA [Suspect]
     Active Substance: PATIROMER
     Route: 048
     Dates: start: 20190716
  3. PROBIOTIC [Concomitant]
     Active Substance: PROBIOTICS NOS
  4. VITAMIN C [Concomitant]
     Active Substance: ASCORBIC ACID
  5. LEVOTHYROXIN [Concomitant]
     Active Substance: LEVOTHYROXINE
  6. CRANBERRY. [Concomitant]
     Active Substance: CRANBERRY
  7. DOK [Concomitant]
     Active Substance: DOCUSATE SODIUM
  8. FINASTERIDE. [Concomitant]
     Active Substance: FINASTERIDE
  9. GALANTAMINE. [Concomitant]
     Active Substance: GALANTAMINE
  10. SIMVASTATIN. [Concomitant]
     Active Substance: SIMVASTATIN
  11. LORATADINE. [Concomitant]
     Active Substance: LORATADINE
  12. VITAMIN D3 [Concomitant]
     Active Substance: CHOLECALCIFEROL
  13. SODIUM BICAR [Concomitant]
  14. FLUOXETINE [Concomitant]
     Active Substance: FLUOXETINE HYDROCHLORIDE
  15. CREON [Concomitant]
     Active Substance: PANCRELIPASE AMYLASE\PANCRELIPASE LIPASE\PANCRELIPASE PROTEASE
  16. DOXAZOSIN [Concomitant]
     Active Substance: DOXAZOSIN MESYLATE
  17. TAMSULOSIN [Concomitant]
     Active Substance: TAMSULOSIN
  18. FAMOTIDINE. [Concomitant]
     Active Substance: FAMOTIDINE
  19. FEROSUL [Concomitant]
     Active Substance: FERROUS SULFATE
  20. LEVEMIR [Concomitant]
     Active Substance: INSULIN DETEMIR

REACTIONS (2)
  - Death [Fatal]
  - Off label use [Unknown]

NARRATIVE: CASE EVENT DATE: 202010
